FAERS Safety Report 6887364-4 (Version None)
Quarter: 2010Q3

REPORT INFORMATION
  Report Type: 
  Country: None (occurrence: None)
  Receive Date: 20100730
  Receipt Date: 20091020
  Transmission Date: 20110219
  Serious: No
  Sender: FDA-Public Use
  Company Number: A0813197A

PATIENT
  Age: 52 Year
  Sex: Female

DRUGS (4)
  1. SUMATRIPTAN SUCCINATE [Suspect]
     Indication: MIGRAINE
     Dosage: 100MG AS REQUIRED
     Route: 048
     Dates: start: 20090801
  2. CIPROFLOXACIN [Suspect]
     Dosage: 500MG TWICE PER DAY
     Route: 048
     Dates: start: 20091008, end: 20091011
  3. DETERGENT [Suspect]
  4. DARVOCET [Concomitant]

REACTIONS (3)
  - EYE SWELLING [None]
  - LOCAL SWELLING [None]
  - URTICARIA [None]
